FAERS Safety Report 4970021-9 (Version None)
Quarter: 2006Q2

REPORT INFORMATION
  Report Type: 
  Country: None (occurrence: None)
  Receive Date: 20060412
  Receipt Date: 20060404
  Transmission Date: 20061013
  Serious: Yes (Other)
  Sender: FDA-Public Use
  Company Number: PHEH2006US04523

PATIENT
  Age: 66 Year
  Sex: Male
  Weight: 104.31 kg

DRUGS (1)
  1. LAMISIL [Suspect]
     Indication: NAIL TINEA
     Dosage: 250 MG, QD
     Route: 048
     Dates: start: 20060228

REACTIONS (3)
  - DIARRHOEA [None]
  - PAIN [None]
  - RENAL DISORDER [None]
